FAERS Safety Report 17009109 (Version 1)
Quarter: 2019Q4

REPORT INFORMATION
  Report Type: Spontaneous
  Country: FR (occurrence: FR)
  Receive Date: 20191108
  Receipt Date: 20191108
  Transmission Date: 20200122
  Serious: Yes (Other)
  Sender: FDA-Public Use
  Company Number: FR-MYLANLABS-2019M1105543

PATIENT
  Age: 87 Year
  Sex: Male
  Weight: 87.9 kg

DRUGS (4)
  1. CITALOPRAM [Suspect]
     Active Substance: CITALOPRAM HYDROBROMIDE
     Indication: DEPRESSION
     Dosage: 20 MILLIGRAM, QD (MORNING)
     Route: 048
     Dates: start: 20190413, end: 20190423
  2. RISPERIDONE. [Suspect]
     Active Substance: RISPERIDONE
     Indication: BEHAVIOUR DISORDER
     Dosage: 1000 MICROGRAM, QD (0.5MG-0.5MG-0)
     Route: 048
     Dates: start: 20190413, end: 20190423
  3. ALPRAZOLAM. [Suspect]
     Active Substance: ALPRAZOLAM
     Indication: PRODUCT USED FOR UNKNOWN INDICATION
     Dosage: 750 MICROGRAM, QD (0.25MG-0.25MG-0.25MG)
     Route: 048
     Dates: start: 20190413, end: 20190423
  4. LOXAPAC                            /00401802/ [Suspect]
     Active Substance: LOXAPINE SUCCINATE
     Indication: AGITATION
     Dosage: 60 GTT DROPS, QD (20-20-20 (GOUTTES)
     Route: 048
     Dates: start: 20190413, end: 20190423

REACTIONS (2)
  - Disturbance in attention [Recovered/Resolved]
  - Suicidal ideation [Unknown]

NARRATIVE: CASE EVENT DATE: 20190423
